FAERS Safety Report 8262816-3 (Version None)
Quarter: 2012Q2

REPORT INFORMATION
  Report Type: 
  Country: None (occurrence: None)
  Receive Date: 20120405
  Receipt Date: 20120326
  Transmission Date: 20120825
  Serious: Yes (Hospitalization)
  Sender: FDA-Public Use
  Company Number: DE-JNJFOC-20120314967

PATIENT
  Sex: Female
  Weight: 60 kg

DRUGS (7)
  1. VALORON N [Concomitant]
     Indication: NEUROPATHY PERIPHERAL
  2. XARELTO [Suspect]
     Indication: CEREBROVASCULAR ACCIDENT PROPHYLAXIS
     Route: 048
     Dates: start: 20120113
  3. XARELTO [Suspect]
     Indication: ATRIAL FIBRILLATION
     Route: 048
     Dates: start: 20120113
  4. WHOLE BLOOD [Concomitant]
  5. METOPROLOL SUCCINATE [Concomitant]
  6. RAMIPRIL [Concomitant]
     Indication: HYPERTENSION
  7. SIMVASTATIN [Concomitant]
     Indication: BLOOD CHOLESTEROL INCREASED

REACTIONS (2)
  - ANAEMIA MACROCYTIC [None]
  - HAEMOGLOBIN DECREASED [None]
